FAERS Safety Report 10527853 (Version 1)
Quarter: 2014Q4

REPORT INFORMATION
  Report Type: Spontaneous
  Country: US (occurrence: US)
  Receive Date: 20141020
  Receipt Date: 20141020
  Transmission Date: 20150528
  Serious: No
  Sender: FDA-Public Use
  Company Number: US-PFIZER INC-2014283912

PATIENT
  Age: 63 Year
  Sex: Male
  Weight: 88.44 kg

DRUGS (1)
  1. ADVIL [Suspect]
     Active Substance: IBUPROFEN
     Indication: MUSCULOSKELETAL PAIN
     Dosage: 2 DF, UNK

REACTIONS (2)
  - Pruritus [Recovered/Resolved]
  - Urticaria [Not Recovered/Not Resolved]
